FAERS Safety Report 5126702-X (Version None)
Quarter: 2006Q4

REPORT INFORMATION
  Report Type: 
  Country: None (occurrence: None)
  Receive Date: 20061012
  Receipt Date: 20061012
  Transmission Date: 20070319
  Serious: Yes (Other)
  Sender: FDA-Public Use
  Company Number: None

PATIENT
  Age: 51 Year
  Sex: Male
  Weight: 67.1 kg

DRUGS (2)
  1. BACTRIM [Suspect]
     Indication: HIV INFECTION
     Dosage: DS QD, DS QD, ORAL
     Route: 048
     Dates: start: 20060601, end: 20060626
  2. BACTRIM [Suspect]
     Indication: UPPER RESPIRATORY TRACT INFECTION
     Dosage: DS QD, DS QD, ORAL
     Route: 048
     Dates: start: 20060601, end: 20060626

REACTIONS (1)
  - RASH [None]
